FAERS Safety Report 5443018-2 (Version None)
Quarter: 2007Q3

REPORT INFORMATION
  Report Type: 
  Country: None (occurrence: None)
  Receive Date: 20070905
  Receipt Date: 20070827
  Transmission Date: 20080115
  Serious: Yes (Other)
  Sender: FDA-Public Use
  Company Number: PHBS2007BR14352

PATIENT
  Age: 65 Year
  Sex: Female
  Weight: 64 kg

DRUGS (9)
  1. DILTIAZEM [Concomitant]
     Dosage: 60 MG, BID
     Route: 048
  2. SUSTRATE [Concomitant]
     Dosage: 1 TABLET, BID
     Route: 048
  3. TICLOPIDINE HYDROCHLORIDE [Concomitant]
     Dosage: 1 TABLET, BID
     Route: 048
  4. BONALON [Concomitant]
     Indication: OSTEOPOROSIS
     Dosage: 70 MG/WEEK
     Route: 048
  5. CALTRATE [Concomitant]
     Indication: CALCIUM DEFICIENCY
     Dosage: 600 MG/DAY
     Route: 048
  6. VITAMIN D [Concomitant]
     Indication: CALCIUM DEFICIENCY
     Dosage: 1 TABLET/DAY
     Route: 048
  7. DEFLAZACORT [Concomitant]
     Indication: RHEUMATOID ARTHRITIS
     Dosage: 6 MG/DAY
     Route: 048
  8. CHLOROQUINE PHOSPHATE [Concomitant]
     Dosage: 250 MG / BID PER WEEK
     Route: 048
  9. DIOVAN HCT [Suspect]
     Indication: HYPERTENSION
     Dosage: VAL 80 / HCT 12.5 MG /DAY
     Route: 048

REACTIONS (5)
  - BODY HEIGHT DECREASED [None]
  - CATHETERISATION CARDIAC [None]
  - COUGH [None]
  - ELECTROCARDIOGRAM T WAVE INVERSION [None]
  - NAUSEA [None]
